FAERS Safety Report 10191639 (Version 1)
Quarter: 2014Q2

REPORT INFORMATION
  Report Type: Spontaneous
  Country: LK (occurrence: LK)
  Receive Date: 20140523
  Receipt Date: 20140523
  Transmission Date: 20141212
  Serious: Yes (Life-Threatening, Hospitalization)
  Sender: FDA-Public Use
  Company Number: LK-ABBVIE-14P-145-1240272-00

PATIENT
  Age: 75 Year
  Sex: Female

DRUGS (10)
  1. SODIUM VALPROATE [Suspect]
     Indication: BIPOLAR DISORDER
  2. SODIUM VALPROATE [Suspect]
  3. SODIUM VALPROATE [Suspect]
     Dates: start: 201202
  4. RISPERIDONE [Suspect]
     Indication: BIPOLAR DISORDER
  5. RISPERIDONE [Suspect]
  6. RISPERIDONE [Suspect]
     Dates: start: 201202
  7. RISPERIDONE [Suspect]
     Dosage: AT BEDTIME
     Dates: start: 2012, end: 2012
  8. LORAZEPAM [Suspect]
     Indication: AGITATION
     Route: 048
     Dates: start: 201202
  9. LORAZEPAM [Suspect]
     Indication: POOR QUALITY SLEEP
  10. HALOPERIDOL [Concomitant]
     Indication: PRODUCT USED FOR UNKNOWN INDICATION

REACTIONS (7)
  - Hypothermia [Recovered/Resolved]
  - Somnolence [Recovered/Resolved]
  - Electrocardiogram abnormal [Recovered/Resolved]
  - Mania [Recovered/Resolved]
  - Incorrect dose administered [Recovered/Resolved]
  - Somnolence [Recovered/Resolved]
  - Dysarthria [Recovered/Resolved]
